FAERS Safety Report 23842854 (Version 2)
Quarter: 2024Q2

REPORT INFORMATION
  Report Type: Spontaneous
  Country: IT (occurrence: IT)
  Receive Date: 20240510
  Receipt Date: 20240514
  Transmission Date: 20240716
  Serious: Yes (Other)
  Sender: FDA-Public Use
  Company Number: IT-ROCHE-3210274

PATIENT
  Age: 50 Year
  Sex: Female
  Weight: 64 kg

DRUGS (6)
  1. TRASTUZUMAB [Suspect]
     Active Substance: TRASTUZUMAB
     Indication: HER2 positive breast cancer
     Dosage: 384 MG
     Route: 065
     Dates: start: 20211214, end: 20220105
  2. CARBOPLATIN [Suspect]
     Active Substance: CARBOPLATIN
     Indication: HER2 positive breast cancer
     Dosage: LAST DOSE BEFORE SAE 26/JAN/2022
     Route: 042
     Dates: start: 20220126, end: 20220329
  3. PERTUZUMAB [Suspect]
     Active Substance: PERTUZUMAB
     Indication: HER2 positive breast cancer
     Dosage: 420 MG
     Route: 065
     Dates: start: 20211214, end: 20220105
  4. PACLITAXEL [Suspect]
     Active Substance: PACLITAXEL
     Indication: HER2 positive breast cancer
     Dosage: LAST DOSE BEFORE SAE 26/JAN/2022, EVERY 3 WEEKS
     Route: 042
     Dates: start: 20211214, end: 20220329
  5. ATEZOLIZUMAB [Suspect]
     Active Substance: ATEZOLIZUMAB
     Indication: HER2 positive breast cancer
     Dosage: 1200 MG
     Route: 042
     Dates: start: 20211214
  6. TAXOL [Concomitant]
     Active Substance: PACLITAXEL
     Dosage: LAST DOSE BEFORE SAE 26/01/2022
     Dates: start: 20211214, end: 20220323

REACTIONS (3)
  - Colitis [Recovered/Resolved]
  - Diarrhoea [Recovered/Resolved]
  - Infusion related reaction [Recovered/Resolved]

NARRATIVE: CASE EVENT DATE: 20211214
